FAERS Safety Report 16586833 (Version 1)
Quarter: 2019Q3

REPORT INFORMATION
  Report Type: Spontaneous
  Country: IT (occurrence: IT)
  Receive Date: 20190717
  Receipt Date: 20190717
  Transmission Date: 20191004
  Serious: Yes (Death, Hospitalization)
  Sender: FDA-Public Use
  Company Number: IT-PFIZER INC-2019299400

PATIENT
  Age: 964 Month
  Sex: Male

DRUGS (12)
  1. PALEXIA [Suspect]
     Active Substance: TAPENTADOL HYDROCHLORIDE
     Indication: GROIN PAIN
     Dosage: 100 MG, AS NEEDED
     Route: 048
     Dates: start: 20180924
  2. SOPAVI [Concomitant]
     Indication: HYPERCHOLESTEROLAEMIA
     Dosage: 20 MG, 1X/DAY
     Route: 048
     Dates: start: 20180503
  3. PARACETAMOL [Concomitant]
     Active Substance: ACETAMINOPHEN
     Indication: PROPHYLAXIS
     Dosage: 1000 MMOL, SINGLE
     Route: 048
     Dates: start: 20180911
  4. PARACETAMOL [Concomitant]
     Active Substance: ACETAMINOPHEN
     Dosage: 1000 MG, EVERY 8 HOURS
     Route: 048
     Dates: start: 20180924
  5. CHLORPHENAMINE MALEATE [Concomitant]
     Active Substance: CHLORPHENIRAMINE MALEATE
     Indication: PROPHYLAXIS
     Dosage: 10 MG, SINGLE
     Route: 042
     Dates: start: 20180911
  6. HYOSCYAMINE SULFATE. [Concomitant]
     Active Substance: HYOSCYAMINE SULFATE
     Indication: PROPHYLAXIS
     Dosage: 30 MG, 1X/DAY
     Route: 048
     Dates: start: 20180503
  7. MEDI4736 [Suspect]
     Active Substance: DURVALUMAB
     Indication: BLADDER TRANSITIONAL CELL CARCINOMA
     Dosage: 1500 MG, EVERY 4 WEEKS
     Route: 042
     Dates: start: 20180911, end: 20180911
  8. NOVORAPID [Concomitant]
     Active Substance: INSULIN ASPART
     Indication: DIABETES MELLITUS
     Dosage: UNK, 1X/DAY
     Route: 030
     Dates: start: 1978
  9. GLUCERNA [Concomitant]
     Active Substance: AMINO ACIDS\DEXTROSE\ELECTROLYTES NOS\SOYBEAN OIL\VITAMINS
     Indication: ASTHENIA
     Dosage: 220 MG, 1X/DAY
     Route: 048
     Dates: start: 201809
  10. NALOXONE HCL [Suspect]
     Active Substance: NALOXONE HYDROCHLORIDE
  11. TARGIN [Suspect]
     Active Substance: NALOXONE HYDROCHLORIDE\OXYCODONE HYDROCHLORIDE
     Indication: PAIN
     Dosage: 10 MG, EVERY 12 HOURS
     Route: 048
     Dates: start: 201809, end: 20180924
  12. LANTUS [Concomitant]
     Active Substance: INSULIN GLARGINE
     Indication: DIABETES MELLITUS
     Dosage: UNK, 1X/DAY
     Route: 030
     Dates: start: 1978

REACTIONS (2)
  - Muscular weakness [Not Recovered/Not Resolved]
  - Transitional cell cancer of the renal pelvis and ureter [Fatal]

NARRATIVE: CASE EVENT DATE: 20180925
